FAERS Safety Report 5628608-6 (Version None)
Quarter: 2008Q1

REPORT INFORMATION
  Report Type: 
  Country: None (occurrence: None)
  Receive Date: 20080214
  Receipt Date: 20080214
  Transmission Date: 20080703
  Serious: Yes (Hospitalization)
  Sender: FDA-Public Use
  Company Number: None

PATIENT
  Age: 86 Year
  Sex: Male

DRUGS (2)
  1. WARFARIN SODIUM [Suspect]
     Indication: ATRIAL FIBRILLATION
     Dosage: 2MG EVERY DAY PO
     Route: 048
     Dates: start: 20080130, end: 20080131
  2. INDOMETHACIN [Suspect]
     Dosage: 75MG EVERY DAY PO
     Route: 048
     Dates: start: 20080112, end: 20080130

REACTIONS (4)
  - ANAEMIA [None]
  - DIZZINESS [None]
  - HAEMORRHAGE [None]
  - INTERNATIONAL NORMALISED RATIO INCREASED [None]
